FAERS Safety Report 12853612 (Version 1)
Quarter: 2016Q4

REPORT INFORMATION
  Report Type: Spontaneous
  Country: DE (occurrence: DE)
  Receive Date: 20161017
  Receipt Date: 20161017
  Transmission Date: 20170207
  Serious: Yes (Other)
  Sender: FDA-Public Use
  Company Number: DE-DRREDDYS-GER/GER/16/0083906

PATIENT
  Sex: Male
  Weight: 1.88 kg

DRUGS (2)
  1. VENLAFAXINE [Suspect]
     Active Substance: VENLAFAXINE HYDROCHLORIDE
     Indication: DEPRESSION
     Dosage: 75 MG/D (BIS 37.5 MG/D) UNTIL GESTATIONAL WEEK 7:75 MG/D, THEN STOP, AGAIN FROM GW 10 UNTIL DELIVERY
     Route: 064
  2. FOLS?URE [Concomitant]
     Indication: PROPHYLAXIS OF NEURAL TUBE DEFECT
     Route: 064
     Dates: start: 20150407, end: 20150427

REACTIONS (2)
  - Foetal exposure during pregnancy [Recovered/Resolved]
  - Small for dates baby [Recovering/Resolving]

NARRATIVE: CASE EVENT DATE: 20151023
